FAERS Safety Report 21464731 (Version 1)
Quarter: 2022Q4

REPORT INFORMATION
  Report Type: Spontaneous
  Country: US (occurrence: None)
  Receive Date: 20221014
  Receipt Date: 20221014
  Transmission Date: 20230113
  Serious: No
  Sender: FDA-Public Use
  Company Number: None

PATIENT
  Sex: Male

DRUGS (1)
  1. EVEROLIMUS [Suspect]
     Active Substance: EVEROLIMUS
     Indication: Carcinoid tumour of the stomach
     Dosage: FREQUENCY : DAILY;?
     Route: 048
     Dates: start: 20220921

REACTIONS (3)
  - Pyrexia [None]
  - Nausea [None]
  - Vomiting [None]
